FAERS Safety Report 9150089 (Version 1)
Quarter: 2013Q1

REPORT INFORMATION
  Report Type: Spontaneous
  Country: US (occurrence: None)
  Receive Date: 20130201
  Receipt Date: 20130201
  Transmission Date: 20140127
  Serious: Yes (Other)
  Sender: FDA-Public Use
  Company Number: DSA_62166_2013

PATIENT
  Sex: Female

DRUGS (1)
  1. XENAZINE 12.5 MG (NOT SPECIFIED) [Suspect]
     Route: 048
     Dates: start: 20120209

REACTIONS (1)
  - Convulsion [None]
